FAERS Safety Report 25114755 (Version 1)
Quarter: 2025Q1

REPORT INFORMATION
  Report Type: Spontaneous
  Country: NO (occurrence: NO)
  Receive Date: 20250324
  Receipt Date: 20250324
  Transmission Date: 20250409
  Serious: Yes (Other)
  Sender: Alora Pharma
  Company Number: NO-OSMOTICA PHARMACEUTICALS-2025ALO02096

PATIENT
  Sex: Male
  Weight: 3.789 kg

DRUGS (2)
  1. VENLAFAXINE [Suspect]
     Active Substance: VENLAFAXINE HYDROCHLORIDE
     Route: 064
  2. VENLAFAXINE [Suspect]
     Active Substance: VENLAFAXINE HYDROCHLORIDE
     Route: 063

REACTIONS (7)
  - Seizure [Recovered/Resolved]
  - Drug withdrawal syndrome neonatal [None]
  - Respiratory distress [None]
  - Toxicity to various agents [Recovered/Resolved]
  - Hypotonia [None]
  - Foetal exposure during pregnancy [Recovered/Resolved]
  - Maternal exposure during breast feeding [Recovered/Resolved]
